FAERS Safety Report 14572535 (Version 1)
Quarter: 2018Q1

REPORT INFORMATION
  Report Type: Report from Study
  Country: CA (occurrence: CA)
  Receive Date: 20180226
  Receipt Date: 20180226
  Transmission Date: 20180509
  Serious: Yes (Death, Life-Threatening, Hospitalization, Disabling, Other)
  Sender: FDA-Public Use
  Company Number: PHHO2016CA001948

PATIENT
  Age: 4 Year
  Sex: Female
  Weight: 21.5 kg

DRUGS (27)
  1. MORPHINE [Suspect]
     Active Substance: MORPHINE
     Indication: SEDATION
     Dosage: UNK
     Route: 065
  2. MITOXANTRONE [Concomitant]
     Active Substance: MITOXANTRONE HYDROCHLORIDE
     Indication: ACUTE LYMPHOCYTIC LEUKAEMIA
     Dosage: 7.6 MG, UNK (CUMULATIVE DOSE 30.4 MG)
     Route: 042
     Dates: start: 20151005, end: 20151006
  3. FLUDARABINE [Concomitant]
     Active Substance: FLUDARABINE PHOSPHATE
     Indication: ACUTE LYMPHOCYTIC LEUKAEMIA
     Dosage: 23 MG, UNK (CUMULATIVE DOSE 92 MG)
     Route: 065
     Dates: start: 20160122, end: 20160125
  4. CYTARABINE. [Concomitant]
     Active Substance: CYTARABINE
     Dosage: 2280 MG, UNK (CUMULATIVE DOSE 9120 MG)
     Dates: start: 20160107, end: 20160109
  5. KETAMINE [Suspect]
     Active Substance: KETAMINE
     Indication: SEDATION
     Dosage: NO TREATMENT
     Route: 042
  6. CASPOFUNGINE [Concomitant]
     Indication: NEUTROPENIA
     Dosage: UNK
     Route: 065
  7. DEXAMETHASONE. [Concomitant]
     Active Substance: DEXAMETHASONE
     Indication: ACUTE LYMPHOCYTIC LEUKAEMIA
     Dosage: 7.6 MG, UNK (CUMULATIVE DOSE 152 MG)
     Route: 048
     Dates: start: 20151005, end: 20151023
  8. CYCLOPHOSPHAMIDE. [Concomitant]
     Active Substance: CYCLOPHOSPHAMIDE
     Indication: ACUTE LYMPHOCYTIC LEUKAEMIA
     Dosage: 300 MG, UNK (CUMULATIVE DOSE 1500 MG)
     Route: 065
     Dates: start: 20151124, end: 20151128
  9. CYTARABINE. [Concomitant]
     Active Substance: CYTARABINE
     Indication: ACUTE LYMPHOCYTIC LEUKAEMIA
     Dosage: 40 MG, UNK (CUMULATIVE DOSE 40 MG)
     Route: 065
     Dates: start: 20151124, end: 20151128
  10. VANCOMYCINE [Concomitant]
     Active Substance: VANCOMYCIN
     Indication: NEUTROPENIA
     Dosage: UNK
     Route: 065
  11. METHOTREXATE. [Concomitant]
     Active Substance: METHOTREXATE
     Indication: ACUTE LYMPHOCYTIC LEUKAEMIA
     Dosage: 12 MG, UNK (CUMULATIVE DOSE 24 MG)
     Route: 037
     Dates: start: 20151005, end: 20151013
  12. METHOTREXATE. [Concomitant]
     Active Substance: METHOTREXATE
     Dosage: 12 MG, UNK (CUMULATIVE DOSE 12 MG)
     Route: 037
     Dates: start: 20160107, end: 20160107
  13. CYCLOPHOSPHAMIDE. [Concomitant]
     Active Substance: CYCLOPHOSPHAMIDE
     Dosage: 380 MG, UNK (CUMULATIVE DOSE 760 MG)
     Route: 065
     Dates: start: 20160122, end: 20160123
  14. PHENYTOIN. [Suspect]
     Active Substance: PHENYTOIN
     Dosage: 6 MG/KG/G
     Route: 042
     Dates: start: 20160216, end: 20160225
  15. KETAMINE [Suspect]
     Active Substance: KETAMINE
     Indication: ANALGESIC THERAPY
     Dosage: UNK
     Route: 042
     Dates: start: 20160206, end: 20160224
  16. DEXAMETHASONE. [Concomitant]
     Active Substance: DEXAMETHASONE
     Dosage: 7.6 MG, UNK (CUMULATIVE DOSE 152 MG)
     Route: 042
     Dates: start: 20151005, end: 20151023
  17. ASPARAGINASE ERWINIA CHRYSANTHEMI [Concomitant]
     Active Substance: ASPARAGINASE ERWINIA CHRYSANTHEMI
     Indication: ACUTE LYMPHOCYTIC LEUKAEMIA
     Dosage: 19000 U (^UI^), UNK (CUMULATIVE DOSE 228 000 UI)
     Route: 030
     Dates: start: 20151007, end: 20151101
  18. ASPARAGINASE ERWINIA CHRYSANTHEMI [Concomitant]
     Active Substance: ASPARAGINASE ERWINIA CHRYSANTHEMI
     Dosage: 20000 U (^UI^), UNK (CUMULATIVE DOSE 39 000 UI)
     Route: 065
     Dates: start: 20160109, end: 20160111
  19. PHENYTOIN. [Suspect]
     Active Substance: PHENYTOIN
     Indication: SEIZURE
     Dosage: NO TREATMENT
     Route: 042
  20. CLONIDINE. [Suspect]
     Active Substance: CLONIDINE
     Indication: SEDATION
     Dosage: NO TREATMENT
     Route: 048
  21. CLOFARABINE. [Concomitant]
     Active Substance: CLOFARABINE
     Indication: ACUTE LYMPHOCYTIC LEUKAEMIA
     Dosage: 30 MG, UNK (CUMULATIVE DOSE 150 MG)
     Dates: start: 20151124, end: 20151128
  22. CLONIDINE. [Suspect]
     Active Substance: CLONIDINE
     Indication: ANALGESIC THERAPY
     Dosage: 25 MG, QID
     Route: 048
     Dates: start: 20160224
  23. MEROPENEM. [Concomitant]
     Active Substance: MEROPENEM
     Indication: NEUTROPENIA
  24. ETOPOSIDE. [Concomitant]
     Active Substance: ETOPOSIDE
     Indication: ACUTE LYMPHOCYTIC LEUKAEMIA
     Dosage: 113 MG, UNK (CUMULATIVE DOSE 565 MG)
     Route: 065
     Dates: start: 20151124, end: 20151128
  25. CTL019 [Suspect]
     Active Substance: TISAGENLECLEUCEL
     Indication: ACUTE LYMPHOCYTIC LEUKAEMIA
     Dosage: 4X10^6 TRANSDUCED VIABLE T CELL/KG, 0.2X10^9 TOTAL VIABLE CELL, CALCULATED CELL 0.01X10^9 CELL/KG
     Route: 042
     Dates: start: 20160203, end: 20160203
  26. MEROPENEM. [Concomitant]
     Active Substance: MEROPENEM
     Indication: LEUKOPENIA
     Dosage: UNK
     Route: 065
  27. VINCRISTINE [Concomitant]
     Active Substance: VINCRISTINE
     Indication: ACUTE LYMPHOCYTIC LEUKAEMIA
     Dosage: 1.1 MG, UNK (CUMULATIVE DOSE 4.4 MG)
     Route: 042
     Dates: start: 20151005, end: 20151026

REACTIONS (17)
  - Cytokine release syndrome [Recovered/Resolved]
  - Vasoplegia syndrome [Recovered/Resolved]
  - Multiple organ dysfunction syndrome [Unknown]
  - Inflammation [Not Recovered/Not Resolved]
  - Hypotension [Recovered/Resolved]
  - Rhabdomyolysis [Recovered/Resolved]
  - Dyspnoea [Not Recovered/Not Resolved]
  - Acute respiratory distress syndrome [Recovered/Resolved]
  - Acute kidney injury [Recovered/Resolved with Sequelae]
  - Encephalopathy [Not Recovered/Not Resolved]
  - Histiocytosis haematophagic [Recovered/Resolved]
  - Renal tubular necrosis [Recovered/Resolved with Sequelae]
  - Encephalitis [Fatal]
  - Human herpesvirus 6 infection [Unknown]
  - Hypernatraemia [Recovered/Resolved]
  - Tachycardia [Recovered/Resolved]
  - Cholestasis [Recovered/Resolved]

NARRATIVE: CASE EVENT DATE: 20160204
